FAERS Safety Report 8757634 (Version 5)
Quarter: 2013Q1

REPORT INFORMATION
  Report Type: Spontaneous
  Country: BR (occurrence: BR)
  Receive Date: 20120828
  Receipt Date: 20130123
  Transmission Date: 20140127
  Serious: Yes (Other)
  Sender: FDA-Public Use
  Company Number: PHHY2012BR069549

PATIENT
  Age: 58 Year
  Sex: Male
  Weight: 80 kg

DRUGS (20)
  1. SINVASTACOR [Suspect]
     Indication: BLOOD CHOLESTEROL
     Dosage: 1 DF, QD AT BED TIME
     Route: 048
     Dates: start: 20120726, end: 20120826
  2. SINVASTACOR [Interacting]
     Dosage: 1 DF, QD AT BED TIME
     Route: 048
     Dates: start: 20120831
  3. SINVASTACOR [Interacting]
     Dates: start: 20030117
  4. METFORMIN HYDROCHLORIDE [Interacting]
     Indication: DIABETES MELLITUS
     Dosage: 750 MG, IN THE MORNING
  5. METFORMIN HYDROCHLORIDE [Interacting]
     Dosage: 850 MG, AT LUNCH
  6. METFORMIN HYDROCHLORIDE [Interacting]
     Dosage: 850 MG, AT DINNER
  7. GLICLAZIDE [Interacting]
     Indication: DIABETES MELLITUS
     Dosage: 2 DF, AT COFFEE BREAK
  8. THIAMINE HYDROCHLORIDE [Interacting]
     Indication: DIABETES MELLITUS
     Dosage: 1 DF IN THE MORNING
  9. PURAN T4 [Interacting]
     Indication: HYPOTHYROIDISM
     Dosage: 1 DF IN THE MORNING (FASTING)
     Dates: start: 1989
  10. OMEPRAZOLE [Interacting]
     Dosage: 1 DF, IN THE MORNING (FASTING)
     Dates: start: 20120726
  11. SULPAN [Interacting]
     Indication: DEPRESSION
     Dosage: 1 DF, BID
  12. BROMAZEPAM [Interacting]
     Indication: DEPRESSION
     Dosage: 1 DF, BID
     Dates: start: 2003
  13. GLIMEPIRIDE [Interacting]
     Indication: DIABETES MELLITUS
     Dosage: 1 AND HALF TABLET AT LUNCH
  14. GLIMEPIRIDE [Interacting]
     Dosage: 1 DF AT DINNER
  15. TRAZODONE HYDROCHLORIDE [Interacting]
     Indication: DEPRESSION
     Dosage: 50 MG, QD
     Dates: start: 2010
  16. DORFLEX [Interacting]
     Indication: PAIN
     Dosage: 2 DF, QD
  17. DOSTINEX [Interacting]
     Indication: PITUITARY TUMOUR BENIGN
     Dosage: 0.5 MG, QW
     Dates: start: 2009
  18. LOSARTAN POTASSIUM [Interacting]
     Indication: HYPERTENSION
     Dosage: 50 MG, BID
  19. LOSARTAN POTASSIUM [Interacting]
     Dosage: UNK
  20. ATENOLOL [Interacting]
     Indication: HYPERTENSION
     Dosage: 25 MG, QD (IN THE MORNING)

REACTIONS (10)
  - Myocardial ischaemia [Recovering/Resolving]
  - Dyspnoea [Not Recovered/Not Resolved]
  - Haemorrhoids [Recovered/Resolved]
  - Arthralgia [Recovered/Resolved]
  - Pain in extremity [Not Recovered/Not Resolved]
  - Musculoskeletal pain [Recovered/Resolved]
  - Asthenia [Recovering/Resolving]
  - Myalgia [Recovering/Resolving]
  - Drug interaction [Unknown]
  - Dry mouth [Recovering/Resolving]
